FAERS Safety Report 4410303-2 (Version None)
Quarter: 2004Q2

REPORT INFORMATION
  Report Type: 
  Country: None (occurrence: None)
  Receive Date: 20040618
  Receipt Date: 20040319
  Transmission Date: 20050107
  Serious: No
  Sender: FDA-Public Use
  Company Number: US-JNJFOC-20040305088

PATIENT
  Age: 25 Year
  Sex: Female
  Weight: 72.5755 kg

DRUGS (7)
  1. ORTHO EVRA [Suspect]
     Indication: CONTRACEPTION
     Dosage: 1 DOSE(S), 3 IN 4 WEEK, TRANSDERMAL
     Route: 062
     Dates: start: 20040312
  2. CELEXA [Concomitant]
  3. AMAPHEN ((AXOTAL) OLD FORM) [Concomitant]
  4. IRON SUPPLEMENT (IRON) [Concomitant]
  5. PRENATAL VITAMINS (PRENATAL VITAMINS) [Concomitant]
  6. FOLIC ACID [Concomitant]
  7. AMOXIL [Concomitant]

REACTIONS (1)
  - METRORRHAGIA [None]
